FAERS Safety Report 14871063 (Version 1)
Quarter: 2018Q2

REPORT INFORMATION
  Report Type: Spontaneous
  Country: US (occurrence: US)
  Receive Date: 20180424
  Receipt Date: 20180424
  Transmission Date: 20180711
  Serious: No
  Sender: FDA-Public Use
  Company Number: None

PATIENT
  Age: 41 Year
  Sex: Female
  Weight: 69.75 kg

DRUGS (1)
  1. BOTOX [Suspect]
     Active Substance: ONABOTULINUMTOXINA
     Indication: PREMATURE AGEING
     Route: 058
     Dates: start: 20180216

REACTIONS (7)
  - Urinary tract infection [None]
  - Dizziness [None]
  - Palpitations [None]
  - Facial paralysis [None]
  - Upper respiratory tract infection [None]
  - Dry eye [None]
  - Neck pain [None]

NARRATIVE: CASE EVENT DATE: 20180216
